FAERS Safety Report 5139510-0 (Version None)
Quarter: 2006Q4

REPORT INFORMATION
  Report Type: 
  Country: None (occurrence: None)
  Receive Date: 20061030
  Receipt Date: 20061024
  Transmission Date: 20070319
  Serious: Yes (Death, Other)
  Sender: FDA-Public Use
  Company Number: IL-ROXANE LABORATORIES, INC-2006-BP-12487RO

PATIENT
  Age: 51 Year
  Sex: Female

DRUGS (2)
  1. TAMOXIFEN CITRATE [Suspect]
     Indication: SCLEROSING ENCAPSULATING PERITONITIS
     Dosage: 20 MG DAILY
     Dates: start: 20050501
  2. PREDNISONE TAB [Suspect]
     Indication: SCLEROSING ENCAPSULATING PERITONITIS
     Dosage: 30 MG DAILY
     Dates: start: 20050501

REACTIONS (8)
  - ANAEMIA [None]
  - BACTERIAL SEPSIS [None]
  - CALCIPHYLAXIS [None]
  - DRUG DEPENDENCE [None]
  - DRUG INEFFECTIVE [None]
  - HYPOALBUMINAEMIA [None]
  - HYPOTENSION [None]
  - SKIN ULCER [None]
